FAERS Safety Report 13342613 (Version 11)
Quarter: 2017Q3

REPORT INFORMATION
  Report Type: Spontaneous
  Country: PR (occurrence: PR)
  Receive Date: 20170316
  Receipt Date: 20170809
  Transmission Date: 20171127
  Serious: Yes (Hospitalization, Other)
  Sender: FDA-Public Use
  Company Number: PR-PFIZER INC-2017107294

PATIENT
  Age: 49 Year
  Sex: Male
  Weight: 70 kg

DRUGS (9)
  1. SUTENT [Suspect]
     Active Substance: SUNITINIB MALATE
     Indication: RENAL CANCER METASTATIC
     Dosage: 50 MG, CYCLIC (DAILY X 28 DAYS)
     Route: 048
     Dates: start: 20170306
  2. CENTRUM [Concomitant]
     Active Substance: VITAMINS
     Dosage: UNK
  3. SUTENT [Suspect]
     Active Substance: SUNITINIB MALATE
     Dosage: 50 MG, CYCLIC (1 TAB PO DAILY X 28 DAY, 2 WEEKS OF REST)
     Route: 048
  4. TAMSULOSIN [Concomitant]
     Active Substance: TAMSULOSIN
     Dosage: UNK
  5. CIPRO [Concomitant]
     Active Substance: CIPROFLOXACIN HYDROCHLORIDE
     Indication: INFECTION PROPHYLAXIS
     Dosage: UNK
  6. VITAMIN E [Concomitant]
     Active Substance: .ALPHA.-TOCOPHEROL
     Dosage: UNK
  7. WARFARINA [Concomitant]
     Active Substance: WARFARIN
     Dosage: UNK
  8. SUTENT [Suspect]
     Active Substance: SUNITINIB MALATE
     Dosage: 50 MG, CYCLIC (DAILY, 28 DAYS ON/14 DAYS OFF)
     Route: 048
     Dates: start: 20170307
  9. TRAMADOL. [Concomitant]
     Active Substance: TRAMADOL
     Dosage: UNK

REACTIONS (28)
  - Cough [Unknown]
  - Dry skin [Not Recovered/Not Resolved]
  - Dry mouth [Unknown]
  - Swelling face [Unknown]
  - Abdominal pain [Not Recovered/Not Resolved]
  - Diarrhoea [Unknown]
  - Choking [Unknown]
  - Decreased appetite [Unknown]
  - Eye oedema [Unknown]
  - Skin lesion [Unknown]
  - Headache [Unknown]
  - Dysphagia [Unknown]
  - Dysgeusia [Unknown]
  - Eyelid oedema [Unknown]
  - Fatigue [Unknown]
  - Haemoglobin decreased [Unknown]
  - Umbilical hernia [Unknown]
  - Vomiting [Unknown]
  - Dyspepsia [Unknown]
  - Peripheral swelling [Unknown]
  - Eye swelling [Unknown]
  - Limb discomfort [Unknown]
  - Skin haemorrhage [Unknown]
  - Palmar-plantar erythrodysaesthesia syndrome [Unknown]
  - Pain in extremity [Unknown]
  - Blood urine present [Recovered/Resolved]
  - Eating disorder [Unknown]
  - Nausea [Recovered/Resolved]

NARRATIVE: CASE EVENT DATE: 201704
